FAERS Safety Report 25272816 (Version 1)
Quarter: 2025Q2

REPORT INFORMATION
  Report Type: Spontaneous
  Country: BR (occurrence: BR)
  Receive Date: 20250506
  Receipt Date: 20250506
  Transmission Date: 20250717
  Serious: Yes (Hospitalization, Other)
  Sender: TEVA
  Company Number: BR-TEVA-VS-3326970

PATIENT
  Sex: Male

DRUGS (1)
  1. COPAXONE [Suspect]
     Active Substance: GLATIRAMER ACETATE
     Indication: Multiple sclerosis
     Route: 064
     Dates: start: 2016, end: 2019

REACTIONS (4)
  - Premature baby [Unknown]
  - Low birth weight baby [Unknown]
  - Foetal exposure during pregnancy [Unknown]
  - Foetal growth restriction [Recovering/Resolving]

NARRATIVE: CASE EVENT DATE: 20190505
